FAERS Safety Report 6047259-5 (Version None)
Quarter: 2009Q1

REPORT INFORMATION
  Report Type: 
  Country: None (occurrence: None)
  Receive Date: 20090121
  Receipt Date: 20081117
  Transmission Date: 20090719
  Serious: Yes (Hospitalization)
  Sender: FDA-Public Use
  Company Number: 2008US001023

PATIENT
  Age: 78 Year
  Sex: Female

DRUGS (10)
  1. VESICARE [Suspect]
     Indication: HYPERTONIC BLADDER
     Dosage: 5 MG, UID/QD, ORAL
     Route: 048
     Dates: start: 20080226, end: 20080403
  2. AVAPRO [Concomitant]
  3. IMDUR [Concomitant]
  4. ATENOLOL [Concomitant]
  5. ULTRAM [Concomitant]
  6. ATIVAN [Concomitant]
  7. AMBIEN [Concomitant]
  8. CELEXA [Concomitant]
  9. SYNTHROID [Concomitant]
  10. LESBID [Concomitant]

REACTIONS (3)
  - CONFUSIONAL STATE [None]
  - CONSTIPATION [None]
  - DISORIENTATION [None]
